FAERS Safety Report 16372781 (Version 1)
Quarter: 2019Q2

REPORT INFORMATION
  Report Type: Report from Study
  Country: US (occurrence: US)
  Receive Date: 20190530
  Receipt Date: 20190530
  Transmission Date: 20190711
  Serious: Yes (Other)
  Sender: FDA-Public Use
  Company Number: US-MYLANLABS-2019M1050938

PATIENT
  Sex: Female

DRUGS (8)
  1. GEMCITABINE [Suspect]
     Active Substance: GEMCITABINE\GEMCITABINE HYDROCHLORIDE
     Indication: GENITAL NEOPLASM MALIGNANT FEMALE
     Dosage: OVER 30MIN IN 250 CC SODIUM CHLORIDE; DAY 1
     Route: 042
  2. BEVACIZUMAB. [Suspect]
     Active Substance: BEVACIZUMAB
     Indication: GENITAL NEOPLASM MALIGNANT FEMALE
     Dosage: IN 100 CC SODIUM CHLORIDE OVER 1 HOUR; DAY 1
     Route: 042
  3. CYCLOPHOSPHAMIDE. [Suspect]
     Active Substance: CYCLOPHOSPHAMIDE
     Indication: GENITAL NEOPLASM MALIGNANT FEMALE
     Dosage: OVER 30 MIN; DAY 2
     Route: 042
  4. SALINE                             /00075401/ [Concomitant]
     Active Substance: SODIUM CHLORIDE
     Indication: PRODUCT USED FOR UNKNOWN INDICATION
     Dosage: 250 CC (GEMCITABINE AND CISPLATIN) ; 50 CC (IRINOTECAN); 100 CC (BEVACIZUMAB)
     Route: 042
  5. DOCETAXEL. [Suspect]
     Active Substance: DOCETAXEL
     Indication: GENITAL NEOPLASM MALIGNANT FEMALE
     Dosage: OVER 30 MIN; DAY 2
     Route: 042
  6. CISPLATIN. [Suspect]
     Active Substance: CISPLATIN
     Indication: GENITAL NEOPLASM MALIGNANT FEMALE
     Dosage: IN 250 CC SODIUM CHLORIDE OVER 30 MINUTES; DAY 2
     Route: 042
  7. IRINOTECAN [Suspect]
     Active Substance: IRINOTECAN
     Indication: GENITAL NEOPLASM MALIGNANT FEMALE
     Dosage: 20-30 MG/M2 IN IN 50 CC SODIUM CHLORIDE OVER 90 MINUTES; DAY 1
     Route: 042
  8. FLUOROURACIL. [Suspect]
     Active Substance: FLUOROURACIL
     Indication: GENITAL NEOPLASM MALIGNANT FEMALE
     Dosage: GIVEN OVER 24 HOURS; DAY 1
     Route: 042

REACTIONS (1)
  - Syncope [Unknown]
